FAERS Safety Report 7066469-1 (Version None)
Quarter: 2010Q4

REPORT INFORMATION
  Report Type: 
  Country: None (occurrence: None)
  Receive Date: 20101027
  Receipt Date: 20100407
  Transmission Date: 20110411
  Serious: No
  Sender: FDA-Public Use
  Company Number: US-WYE-H14482310

PATIENT
  Sex: Female
  Weight: 81.72 kg

DRUGS (5)
  1. PREMPRO [Suspect]
     Indication: MENOPAUSAL SYMPTOMS
     Route: 065
     Dates: start: 20090401, end: 20091201
  2. PREMPRO [Suspect]
     Dosage: LESS OFTEN THAN 1 DAILY
     Route: 065
     Dates: start: 20100101, end: 20100101
  3. PREMPRO [Suspect]
     Route: 065
     Dates: start: 20100309, end: 20100313
  4. ASPIRIN [Concomitant]
  5. BUPROPION [Concomitant]

REACTIONS (9)
  - BACK PAIN [None]
  - CONDITION AGGRAVATED [None]
  - DYSPAREUNIA [None]
  - UTERINE SPASM [None]
  - VAGINAL DISCHARGE [None]
  - VAGINAL INFECTION [None]
  - VULVAL ULCERATION [None]
  - VULVOVAGINAL MYCOTIC INFECTION [None]
  - WITHDRAWAL SYNDROME [None]
